FAERS Safety Report 8800897 (Version 1)
Quarter: 2012Q4

REPORT INFORMATION
  Report Type: 
  Country: FR (occurrence: FR)
  Receive Date: 20120921
  Receipt Date: 20120921
  Transmission Date: 20130627
  Serious: Yes (Hospitalization)
  Sender: FDA-Public Use
  Company Number: FR-PFIZER INC-2012232120

PATIENT
  Age: 75 Year
  Sex: Female

DRUGS (15)
  1. CORDARONE [Suspect]
     Indication: ATRIAL FIBRILLATION
     Dosage: 200 mg, daily
     Route: 048
     Dates: end: 20120821
  2. TAVANIC [Suspect]
     Indication: INTERVERTEBRAL DISCITIS
     Dosage: 250 mg, 3x/day
     Route: 048
     Dates: start: 20120723, end: 20120821
  3. TARGOCID [Suspect]
     Indication: INTERVERTEBRAL DISCITIS
     Dosage: 400 mg, every 6 hours
     Route: 051
     Dates: start: 20120715, end: 20120723
  4. RIFADINE [Suspect]
     Indication: INTERVERTEBRAL DISCITIS
     Dosage: 300 mg, 3x/day
     Route: 048
     Dates: start: 20120710, end: 20120813
  5. TIENAM 500MG/500MG, POUDRE POUR PERFUSION [Suspect]
     Indication: INTERVERTEBRAL DISCITIS
     Dosage: 500 milligrams; every 6 hours
     Route: 042
     Dates: start: 20120718
  6. ORBENINE [Concomitant]
     Dosage: UNK
     Dates: start: 20120619, end: 20120715
  7. INVANZ [Concomitant]
     Dosage: UNK
     Dates: start: 20120713, end: 20120718
  8. LEVOTHYROX [Concomitant]
     Dosage: UNK
  9. PANTOPRAZOLE [Concomitant]
     Dosage: UNK
  10. LASILIX [Concomitant]
     Dosage: UNK
  11. TRANSIPEG [Concomitant]
     Dosage: UNK
  12. KARDEGIC [Concomitant]
     Dosage: UNK
  13. CRESTOR [Concomitant]
     Dosage: UNK
  14. DIFFU K [Concomitant]
     Dosage: UNK
  15. ECONAZOLE [Concomitant]
     Dosage: UNK

REACTIONS (3)
  - Cholestasis [Recovering/Resolving]
  - Blood alkaline phosphatase increased [Recovering/Resolving]
  - Hepatitis cholestatic [Recovering/Resolving]
